FAERS Safety Report 4744612-4 (Version None)
Quarter: 2005Q3

REPORT INFORMATION
  Report Type: 
  Country: None (occurrence: None)
  Receive Date: 20050809
  Receipt Date: 20040806
  Transmission Date: 20060218
  Serious: Yes (Death, Life-Threatening)
  Sender: FDA-Public Use
  Company Number: 04P-163-0271508-00

PATIENT
  Sex: Female
  Weight: 0.56 kg

DRUGS (2)
  1. SURVANTA [Suspect]
     Indication: RESPIRATORY DISTRESS
     Dates: start: 20021215, end: 20021215
  2. EPINEPHRINE [Concomitant]

REACTIONS (4)
  - DEATH [None]
  - HEART RATE DECREASED [None]
  - PNEUMOTHORAX [None]
  - SEPSIS NEONATAL [None]
